FAERS Safety Report 4682310-6 (Version None)
Quarter: 2005Q2

REPORT INFORMATION
  Report Type: 
  Country: None (occurrence: None)
  Receive Date: 20050606
  Receipt Date: 20050527
  Transmission Date: 20051028
  Serious: Yes (Other)
  Sender: FDA-Public Use
  Company Number: US-JNJFOC-20050600812

PATIENT
  Sex: Male

DRUGS (1)
  1. HALDOL [Suspect]
     Indication: AGITATION

REACTIONS (1)
  - PLATELET COUNT DECREASED [None]
